FAERS Safety Report 25425981 (Version 1)
Quarter: 2025Q2

REPORT INFORMATION
  Report Type: Report from Study
  Country: CA (occurrence: CA)
  Receive Date: 20250612
  Receipt Date: 20250612
  Transmission Date: 20250716
  Serious: Yes (Other)
  Sender: JOHNSON AND JOHNSON
  Company Number: CA-JNJFOC-20250422406

PATIENT
  Age: 35 Year
  Sex: Female

DRUGS (2)
  1. REMICADE [Suspect]
     Active Substance: INFLIXIMAB
     Indication: Product used for unknown indication
     Route: 041
  2. REMICADE [Suspect]
     Active Substance: INFLIXIMAB
     Route: 041

REACTIONS (8)
  - Hernia [Unknown]
  - Diastasis recti abdominis [Unknown]
  - Abdominoplasty [Unknown]
  - Mammoplasty [Unknown]
  - Food poisoning [Unknown]
  - Pharyngitis streptococcal [Recovered/Resolved]
  - Off label use [Unknown]
  - Gastroenteritis viral [Unknown]
